FAERS Safety Report 11356584 (Version 1)
Quarter: 2015Q3

REPORT INFORMATION
  Report Type: Spontaneous
  Country: US (occurrence: US)
  Receive Date: 20150803
  Receipt Date: 20150803
  Transmission Date: 20151125
  Serious: No
  Sender: FDA-Public Use
  Company Number: US-ELI_LILLY_AND_COMPANY-US200901002634

PATIENT
  Age: 63 Year
  Sex: Female

DRUGS (2)
  1. ZYPREXA [Suspect]
     Active Substance: OLANZAPINE
     Indication: PSYCHOTIC DISORDER
     Dosage: 5 MG, UNK
  2. RISPERDAL [Concomitant]
     Active Substance: RISPERIDONE
     Dosage: 5 MG, UNK

REACTIONS (3)
  - Weight decreased [Not Recovered/Not Resolved]
  - Sleep disorder [Recovered/Resolved]
  - Constipation [Not Recovered/Not Resolved]

NARRATIVE: CASE EVENT DATE: 20090113
